FAERS Safety Report 7085360-8 (Version None)
Quarter: 2010Q4

REPORT INFORMATION
  Report Type: 
  Country: None (occurrence: None)
  Receive Date: 20101105
  Receipt Date: 20101022
  Transmission Date: 20110411
  Serious: Yes (Hospitalization, Other)
  Sender: FDA-Public Use
  Company Number: PHHY2010FR73065

PATIENT
  Sex: Female

DRUGS (2)
  1. ANAFRANIL [Suspect]
     Indication: DEPRESSION
     Dosage: 2 DF, UNK
     Route: 048
     Dates: start: 20090301, end: 20100901
  2. LEPONEX [Suspect]
     Indication: MENTAL DISORDER
     Dosage: 4 DF, UNK
     Route: 048
     Dates: start: 20090901

REACTIONS (2)
  - CONGESTIVE CARDIOMYOPATHY [None]
  - MYOPATHY [None]
